FAERS Safety Report 5927286-6 (Version None)
Quarter: 2008Q4

REPORT INFORMATION
  Report Type: 
  Country: None (occurrence: None)
  Receive Date: 20081022
  Receipt Date: 20081017
  Transmission Date: 20090506
  Serious: Yes (Other)
  Sender: FDA-Public Use
  Company Number: CH-MERCK-0810CHE00006

PATIENT
  Age: 56 Year
  Sex: Male

DRUGS (1)
  1. PRINZIDE [Suspect]
     Indication: ESSENTIAL HYPERTENSION
     Route: 048
     Dates: end: 20080828

REACTIONS (1)
  - PANCREATIC ENZYMES INCREASED [None]
